FAERS Safety Report 5128368-1 (Version None)
Quarter: 2006Q4

REPORT INFORMATION
  Report Type: 
  Country: None (occurrence: None)
  Receive Date: 20061011
  Receipt Date: 20060929
  Transmission Date: 20070319
  Serious: Yes (Other)
  Sender: FDA-Public Use
  Company Number: 2006115943

PATIENT
  Sex: Female

DRUGS (2)
  1. ZARONTIN [Suspect]
     Dosage: ORAL
     Route: 048
  2. ALL OTHER THERAPEUTIC PRODUCTS (ALL OTHER THERAPEUTIC PRODUCTS) [Suspect]

REACTIONS (5)
  - ABDOMINAL PAIN UPPER [None]
  - AGGRESSION [None]
  - DRUG DEPENDENCE [None]
  - HEADACHE [None]
  - VOMITING [None]
